FAERS Safety Report 8522395-X (Version None)
Quarter: 2012Q3

REPORT INFORMATION
  Report Type: 
  Country: None (occurrence: None)
  Receive Date: 20120719
  Receipt Date: 20120717
  Transmission Date: 20120928
  Serious: Yes (Life-Threatening, Hospitalization, Other)
  Sender: FDA-Public Use
  Company Number: US-TEVA-349021USA

PATIENT
  Age: 39 Year
  Sex: Female

DRUGS (4)
  1. OMEPRAZOLE [Concomitant]
  2. COPAXONE [Suspect]
     Indication: MULTIPLE SCLEROSIS
     Dosage: 20 MILLIGRAM;
     Route: 058
  3. VITAMIN B-12 [Concomitant]
     Indication: MEDICAL DIET
  4. VITAMIN D [Concomitant]
     Indication: MEDICAL DIET
     Route: 048

REACTIONS (1)
  - TONGUE NEOPLASM MALIGNANT STAGE UNSPECIFIED [None]
